FAERS Safety Report 6075277-X (Version None)
Quarter: 2009Q1

REPORT INFORMATION
  Report Type: 
  Country: None (occurrence: None)
  Receive Date: 20090212
  Receipt Date: 20090203
  Transmission Date: 20090719
  Serious: Yes (Hospitalization)
  Sender: FDA-Public Use
  Company Number: PHHY2009CL04158

PATIENT
  Age: 67 Year
  Sex: Male

DRUGS (2)
  1. TAREG D [Suspect]
     Indication: HYPERTENSION
     Dosage: 1 TABLET (320 MG VALSARTAN/12.5 MG HYDROCHLOROTHIAZIDE), PER DAY
     Dates: start: 20081201
  2. PROPRANOLOL [Concomitant]

REACTIONS (2)
  - DUODENAL ULCER [None]
  - DUODENAL ULCER PERFORATION [None]
